FAERS Safety Report 22048472 (Version 3)
Quarter: 2023Q1

REPORT INFORMATION
  Report Type: Report from Study
  Country: BE (occurrence: BE)
  Receive Date: 20230301
  Receipt Date: 20230331
  Transmission Date: 20230417
  Serious: Yes (Death, Life-Threatening, Hospitalization, Other)
  Sender: FDA-Public Use
  Company Number: BE-BRISTOL-MYERS SQUIBB COMPANY-2022-140031

PATIENT

DRUGS (14)
  1. DEXAMETHASONE [Suspect]
     Active Substance: DEXAMETHASONE
     Indication: Plasma cell myeloma
     Dosage: 20 MG, 1 DOSE WEEKLY
     Route: 048
     Dates: start: 20190731, end: 20191022
  2. DEXAMETHASONE [Suspect]
     Active Substance: DEXAMETHASONE
     Dosage: 20 MG, 1 DOSE WEEKLY
     Route: 048
     Dates: start: 20191023, end: 20200114
  3. REVLIMID [Suspect]
     Active Substance: LENALIDOMIDE
     Indication: Plasma cell myeloma
     Dosage: REST PERIOD
     Route: 065
     Dates: start: 20200108, end: 20200114
  4. REVLIMID [Suspect]
     Active Substance: LENALIDOMIDE
     Dosage: UNK
     Route: 065
     Dates: start: 20190918, end: 20190924
  5. REVLIMID [Suspect]
     Active Substance: LENALIDOMIDE
     Dosage: UNK
     Route: 065
     Dates: start: 20191113, end: 20191119
  6. REVLIMID [Suspect]
     Active Substance: LENALIDOMIDE
     Dosage: Q AM
     Route: 048
     Dates: start: 20191023, end: 20191112
  7. REVLIMID [Suspect]
     Active Substance: LENALIDOMIDE
     Dosage: Q AM
     Route: 048
     Dates: start: 20190925, end: 20191015
  8. REVLIMID [Suspect]
     Active Substance: LENALIDOMIDE
     Dosage: 20 MG
     Route: 048
     Dates: start: 20191016, end: 20191022
  9. REVLIMID [Suspect]
     Active Substance: LENALIDOMIDE
     Dosage: QAM
     Route: 048
     Dates: start: 20190731, end: 20190820
  10. REVLIMID [Suspect]
     Active Substance: LENALIDOMIDE
     Dosage: Q AM
     Route: 048
     Dates: start: 20191120, end: 20191210
  11. REVLIMID [Suspect]
     Active Substance: LENALIDOMIDE
     Dosage: Q AM
     Route: 048
     Dates: start: 20191218, end: 20200107
  12. REVLIMID [Suspect]
     Active Substance: LENALIDOMIDE
     Dosage: UNK
     Route: 065
     Dates: start: 20190821, end: 20190827
  13. REVLIMID [Suspect]
     Active Substance: LENALIDOMIDE
     Dosage: REST PERIOD
     Route: 065
     Dates: start: 20191211, end: 20191217
  14. REVLIMID [Suspect]
     Active Substance: LENALIDOMIDE
     Dosage: Q AM
     Route: 048
     Dates: start: 20190828, end: 20190917

REACTIONS (2)
  - Interstitial lung disease [Fatal]
  - Pneumonia [Fatal]

NARRATIVE: CASE EVENT DATE: 20200204
